FAERS Safety Report 4526770-X (Version None)
Quarter: 2004Q4

REPORT INFORMATION
  Report Type: 
  Country: None (occurrence: None)
  Receive Date: 20041213
  Receipt Date: 20041206
  Transmission Date: 20050328
  Serious: Yes (Death)
  Sender: FDA-Public Use
  Company Number: 2004UW24994

PATIENT
  Age: 60 Year
  Sex: Male

DRUGS (2)
  1. CRESTOR [Suspect]
     Dosage: 5 MG DAILY
  2. CRESTOR [Suspect]
     Dosage: 10 MG DAILY

REACTIONS (2)
  - CORONARY ARTERIAL STENT INSERTION [None]
  - GENERAL PHYSICAL HEALTH DETERIORATION [None]
